FAERS Safety Report 9254606 (Version 1)
Quarter: 2013Q2

REPORT INFORMATION
  Report Type: Spontaneous
  Country: US (occurrence: None)
  Receive Date: 20130422
  Receipt Date: 20130422
  Transmission Date: 20140414
  Serious: Yes (Life-Threatening)
  Sender: FDA-Public Use
  Company Number: None

PATIENT
  Age: 32 Year
  Sex: Male
  Weight: 61.24 kg

DRUGS (1)
  1. CYMBALTA 60MG ELI LILLY [Suspect]
     Dosage: 60 MG 1CE PER DAY PO
     Route: 048
     Dates: start: 20121101, end: 20130415

REACTIONS (6)
  - Irritability [None]
  - Insomnia [None]
  - Depression [None]
  - Suicidal ideation [None]
  - Body temperature fluctuation [None]
  - Drug withdrawal syndrome [None]
